FAERS Safety Report 18712102 (Version 2)
Quarter: 2021Q1

REPORT INFORMATION
  Report Type: Spontaneous
  Country: CA (occurrence: CA)
  Receive Date: 20210107
  Receipt Date: 20210119
  Transmission Date: 20210419
  Serious: Yes (Other)
  Sender: FDA-Public Use
  Company Number: CA-ABBVIE-21K-028-3717204-00

PATIENT
  Age: 35 Year
  Sex: Female

DRUGS (5)
  1. ANCEF [Concomitant]
     Active Substance: CEFAZOLIN SODIUM
     Indication: PRODUCT USED FOR UNKNOWN INDICATION
  2. HUMIRA [Suspect]
     Active Substance: ADALIMUMAB
     Route: 058
  3. IMIPENEM [Concomitant]
     Active Substance: IMIPENEM
     Indication: PRODUCT USED FOR UNKNOWN INDICATION
  4. HUMIRA [Suspect]
     Active Substance: ADALIMUMAB
     Indication: HIDRADENITIS
     Route: 058
  5. ERTAPENEM. [Concomitant]
     Active Substance: ERTAPENEM SODIUM
     Indication: PRODUCT USED FOR UNKNOWN INDICATION

REACTIONS (15)
  - Pain [Recovered/Resolved]
  - Sepsis [Unknown]
  - Neutrophilia [Unknown]
  - Pain [Unknown]
  - Therapeutic product effect decreased [Unknown]
  - Necrotising fasciitis [Unknown]
  - Drainage [Unknown]
  - Inflammatory bowel disease [Unknown]
  - Hidradenitis [Unknown]
  - Hyperhidrosis [Unknown]
  - Scar [Unknown]
  - Erythema [Unknown]
  - Abscess [Unknown]
  - Cellulitis [Unknown]
  - Tenderness [Unknown]
